FAERS Safety Report 21526182 (Version 1)
Quarter: 2022Q4

REPORT INFORMATION
  Report Type: Other
  Country: None (occurrence: FR)
  Receive Date: 20221031
  Receipt Date: 20221031
  Transmission Date: 20230113
  Serious: Yes (Death, Other)
  Sender: FDA-Public Use
  Company Number: FR-Nuvo Pharmaceuticals Inc-2134298

PATIENT
  Age: 34 Year
  Sex: Male

DRUGS (7)
  1. DIAZEPAM [Suspect]
     Active Substance: DIAZEPAM
     Indication: Product used for unknown indication
     Route: 065
  2. OXAZEPAM [Suspect]
     Active Substance: OXAZEPAM
     Route: 065
  3. CLONAZEPAM [Suspect]
     Active Substance: CLONAZEPAM
     Route: 065
  4. PREGABALIN [Suspect]
     Active Substance: PREGABALIN
     Route: 065
  5. SUBUTEX [Suspect]
     Active Substance: BUPRENORPHINE HYDROCHLORIDE
     Route: 065
  6. NORDAZEPAM [Suspect]
     Active Substance: NORDAZEPAM
     Route: 065
  7. TEMAZEPAM [Suspect]
     Active Substance: TEMAZEPAM
     Route: 065

REACTIONS (2)
  - Cardiopulmonary failure [Fatal]
  - Toxicity to various agents [Fatal]
